FAERS Safety Report 6151925-0 (Version None)
Quarter: 2009Q2

REPORT INFORMATION
  Report Type: 
  Country: None (occurrence: None)
  Receive Date: 20090410
  Receipt Date: 20090407
  Transmission Date: 20091009
  Serious: Yes (Other)
  Sender: FDA-Public Use
  Company Number: US-MERCK-0904USA00925

PATIENT
  Age: 65 Year
  Sex: Male
  Weight: 79 kg

DRUGS (5)
  1. DECADRON [Suspect]
     Route: 065
  2. THALOMID [Suspect]
     Indication: MULTIPLE MYELOMA
     Route: 048
     Dates: start: 20080530, end: 20090112
  3. THALOMID [Suspect]
     Route: 048
     Dates: start: 20090101, end: 20090204
  4. TERAZOSIN HYDROCHLORIDE [Concomitant]
     Route: 065
     Dates: start: 20080501
  5. HYDROCHLOROTHIAZIDE [Concomitant]
     Route: 065
     Dates: start: 20080501

REACTIONS (9)
  - ANXIETY [None]
  - DEEP VEIN THROMBOSIS [None]
  - DIZZINESS [None]
  - FATIGUE [None]
  - FEELING ABNORMAL [None]
  - HEADACHE [None]
  - INFLUENZA LIKE ILLNESS [None]
  - MYALGIA [None]
  - PYREXIA [None]
